APPROVED DRUG PRODUCT: MORPHINE SULFATE
Active Ingredient: MORPHINE SULFATE
Strength: 60MG
Dosage Form/Route: TABLET, EXTENDED RELEASE;ORAL
Application: A074862 | Product #003 | TE Code: AB
Applicant: RHODES PHARMACEUTICALS LP
Approved: Jul 7, 1998 | RLD: No | RS: No | Type: RX